FAERS Safety Report 14745335 (Version 3)
Quarter: 2018Q4

REPORT INFORMATION
  Report Type: Spontaneous
  Country: JP (occurrence: JP)
  Receive Date: 20180411
  Receipt Date: 20181219
  Transmission Date: 20190204
  Serious: Yes (Other)
  Sender: FDA-Public Use
  Company Number: JP-BAYER-2018-065029

PATIENT

DRUGS (1)
  1. BAYASPIRIN 100 MG [Suspect]
     Active Substance: ASPIRIN
     Dosage: DAILY DOSE 1 DF
     Route: 048

REACTIONS (3)
  - Dysphagia [Not Recovered/Not Resolved]
  - Circumstance or information capable of leading to medication error [None]
  - Oesophageal carcinoma [None]
